FAERS Safety Report 6865332-6 (Version None)
Quarter: 2010Q3

REPORT INFORMATION
  Report Type: 
  Country: None (occurrence: None)
  Receive Date: 20100720
  Receipt Date: 20100709
  Transmission Date: 20110219
  Serious: Yes (Disabling)
  Sender: FDA-Public Use
  Company Number: OSCN-NO-0902S-0124

PATIENT
  Age: 55 Year
  Sex: Male
  Weight: 86 kg

DRUGS (14)
  1. OMNISCAN [Suspect]
     Indication: RENAL TRANSPLANT
     Dosage: SEE IMAGE
     Route: 042
     Dates: start: 20020116, end: 20020116
  2. OMNISCAN [Suspect]
     Indication: RENAL TRANSPLANT
     Dosage: SEE IMAGE
     Route: 042
     Dates: start: 20020507, end: 20020507
  3. OMNISCAN [Suspect]
     Indication: RENAL TRANSPLANT
     Dosage: SEE IMAGE
     Route: 042
     Dates: start: 20020619, end: 20020619
  4. MEGLUMINE GADOTERATE (DOTAREM) [Concomitant]
  5. METOPROLOL [Concomitant]
  6. ATORVASTATIN [Concomitant]
  7. AMLODIPINE [Concomitant]
  8. SPIRONOLACTONE [Concomitant]
  9. FUROSEMIDE [Concomitant]
  10. CAPTOPRIL [Concomitant]
  11. MOXONIDINE [Concomitant]
  12. IMMUNOSUPPRESSIVE THERAPIES [Concomitant]
  13. EPOETIN ALPHA [Concomitant]
  14. IRON SUPPLEMENTATION [Concomitant]

REACTIONS (2)
  - DIALYSIS [None]
  - NEPHROGENIC SYSTEMIC FIBROSIS [None]
